FAERS Safety Report 6869057-2 (Version None)
Quarter: 2010Q3

REPORT INFORMATION
  Report Type: 
  Country: None (occurrence: None)
  Receive Date: 20100722
  Receipt Date: 20100722
  Transmission Date: 20110219
  Serious: Yes (Other)
  Sender: FDA-Public Use
  Company Number: None

PATIENT
  Age: 19 Year
  Sex: Female

DRUGS (1)
  1. AUGMENTIN '125' [Suspect]

REACTIONS (4)
  - PHARYNGEAL OEDEMA [None]
  - RASH [None]
  - THROAT IRRITATION [None]
  - URTICARIA [None]
